FAERS Safety Report 26028328 (Version 1)
Quarter: 2025Q4

REPORT INFORMATION
  Report Type: Spontaneous
  Country: EU (occurrence: EU)
  Receive Date: 20251111
  Receipt Date: 20251111
  Transmission Date: 20260117
  Serious: Yes (Hospitalization, Other)
  Sender: PURDUE
  Company Number: EU-NAPPMUNDI-GBR-2025-0130238

PATIENT
  Age: 36 Year
  Sex: Female

DRUGS (1)
  1. MORPHINE SULFATE [Suspect]
     Active Substance: MORPHINE SULFATE
     Indication: Sickle cell anaemia with crisis
     Dosage: EXCEEDED 25 MILLIGRAM, DAILY
     Route: 065

REACTIONS (2)
  - Pulmonary hypertension [Recovering/Resolving]
  - Somnolence [Recovering/Resolving]
